FAERS Safety Report 19614521 (Version 1)
Quarter: 2021Q3

REPORT INFORMATION
  Report Type: Spontaneous
  Country: GB (occurrence: GB)
  Receive Date: 20210727
  Receipt Date: 20210727
  Transmission Date: 20211014
  Serious: Yes (Other)
  Sender: FDA-Public Use
  Company Number: GB-PFIZER INC-2021886747

PATIENT
  Age: 33 Year
  Sex: Female
  Weight: 98.42 kg

DRUGS (4)
  1. SYNAREL [Suspect]
     Active Substance: NAFARELIN ACETATE
     Indication: PELVIC PAIN
     Dosage: 2 MG/ML
     Route: 045
     Dates: start: 20210525
  2. DUCILTIA [Concomitant]
     Active Substance: DULOXETINE
  3. ZOMORPH [Concomitant]
     Active Substance: MORPHINE SULFATE
  4. PARACETAMOL [Concomitant]
     Active Substance: ACETAMINOPHEN

REACTIONS (3)
  - Vaginal haemorrhage [Not Recovered/Not Resolved]
  - Migraine [Not Recovered/Not Resolved]
  - Abdominal pain [Not Recovered/Not Resolved]

NARRATIVE: CASE EVENT DATE: 20210525
